FAERS Safety Report 8913779 (Version 1)
Quarter: 2012Q4

REPORT INFORMATION
  Report Type: 
  Country: FR (occurrence: FR)
  Receive Date: 20121119
  Receipt Date: 20121119
  Transmission Date: 20130627
  Serious: Yes (Other)
  Sender: FDA-Public Use
  Company Number: FR-BRISTOL-MYERS SQUIBB COMPANY-17040593

PATIENT
  Age: 60 Year
  Sex: Female

DRUGS (2)
  1. ORENCIA [Suspect]
  2. CORTICOSTEROID [Concomitant]
     Dosage: 1 df = 10 to 12mg

REACTIONS (2)
  - Lung disorder [Unknown]
  - Brain abscess [Recovering/Resolving]
